FAERS Safety Report 15566497 (Version 1)
Quarter: 2018Q4

REPORT INFORMATION
  Report Type: Spontaneous
  Country: US (occurrence: US)
  Receive Date: 20181030
  Receipt Date: 20181030
  Transmission Date: 20190205
  Serious: No
  Sender: FDA-Public Use
  Company Number: US-TEVA-2018-US-967199

PATIENT
  Sex: Female

DRUGS (4)
  1. AMX (CYCLOBENZAPRINE) [Suspect]
     Active Substance: CYCLOBENZAPRINE
     Indication: BACK PAIN
     Route: 065
     Dates: end: 20181008
  2. BACLOFEN. [Concomitant]
     Active Substance: BACLOFEN
     Route: 065
  3. AMX (CYCLOBENZAPRINE) [Suspect]
     Active Substance: CYCLOBENZAPRINE
     Indication: MUSCLE SPASMS
  4. AMX (CYCLOBENZAPRINE) [Suspect]
     Active Substance: CYCLOBENZAPRINE
     Indication: MUSCLE TIGHTNESS

REACTIONS (6)
  - Hyperhidrosis [Recovered/Resolved]
  - Eating disorder [Recovered/Resolved]
  - Abdominal pain upper [Recovered/Resolved]
  - Nausea [Recovered/Resolved]
  - Withdrawal syndrome [Recovered/Resolved]
  - Headache [Recovered/Resolved]

NARRATIVE: CASE EVENT DATE: 20181012
